FAERS Safety Report 9361136 (Version 1)
Quarter: 2013Q2

REPORT INFORMATION
  Report Type: Spontaneous
  Country: FR (occurrence: FR)
  Receive Date: 20130621
  Receipt Date: 20130621
  Transmission Date: 20140414
  Serious: Yes (Hospitalization, Other)
  Sender: FDA-Public Use
  Company Number: FR-BANPHARM-20131424

PATIENT
  Age: 28 Year
  Sex: Male

DRUGS (3)
  1. VALPROIC ACID UNKNOWN PRODUCT [Suspect]
     Indication: EPILEPSY
     Route: 065
  2. VALPROIC ACID UNKNOWN PRODUCT [Suspect]
     Dosage: 750 MG, BID,
     Route: 048
  3. VALPROIC ACID UNKNOWN PRODUCT [Suspect]
     Dosage: 0.05 MG/KG/HR,
     Route: 042

REACTIONS (9)
  - Head injury [Unknown]
  - Fall [Unknown]
  - Status epilepticus [Unknown]
  - Electroencephalogram abnormal [Unknown]
  - Grand mal convulsion [Unknown]
  - Loss of consciousness [Unknown]
  - Extradural haematoma [Unknown]
  - Hyperammonaemic encephalopathy [Unknown]
  - Overdose [Unknown]
